FAERS Safety Report 8575774-9 (Version None)
Quarter: 2012Q3

REPORT INFORMATION
  Report Type: 
  Country: None (occurrence: None)
  Receive Date: 20120807
  Receipt Date: 20120730
  Transmission Date: 20120928
  Serious: Yes (Hospitalization)
  Sender: FDA-Public Use
  Company Number: SE-UCBSA-060885

PATIENT
  Sex: Female
  Weight: 44 kg

DRUGS (1)
  1. CIMZIA [Suspect]
     Indication: RHEUMATOID ARTHRITIS
     Dosage: WEEK 0.2.4(NO LOADING DOSE), NO. OF DOSES RECEIVED: 05,NEXT INJECTION 31/JUL/2012
     Dates: start: 20120501

REACTIONS (7)
  - PARAESTHESIA [None]
  - WEIGHT INCREASED [None]
  - OEDEMA PERIPHERAL [None]
  - CONSTIPATION [None]
  - TRANSIENT ISCHAEMIC ATTACK [None]
  - BLOOD POTASSIUM DECREASED [None]
  - HAEMORRHAGE [None]
